FAERS Safety Report 7428858-2 (Version None)
Quarter: 2011Q2

REPORT INFORMATION
  Report Type: 
  Country: None (occurrence: None)
  Receive Date: 20110413
  Receipt Date: 20110329
  Transmission Date: 20111010
  Serious: Yes (Hospitalization)
  Sender: FDA-Public Use
  Company Number: 030261

PATIENT
  Sex: Male

DRUGS (4)
  1. KEPPRA [Suspect]
     Indication: CONVULSION
     Dosage: 1000 MG BID ORAL, 500 MG BID ORAL
     Route: 048
     Dates: start: 20101005, end: 20101001
  2. KEPPRA [Suspect]
     Indication: EPILEPSY
     Dosage: 1000 MG BID ORAL, 500 MG BID ORAL
     Route: 048
     Dates: start: 20101005, end: 20101001
  3. KEPPRA [Suspect]
     Indication: CONVULSION
     Dosage: 1000 MG BID ORAL, 500 MG BID ORAL
     Route: 048
     Dates: start: 20101001, end: 20101001
  4. KEPPRA [Suspect]
     Indication: EPILEPSY
     Dosage: 1000 MG BID ORAL, 500 MG BID ORAL
     Route: 048
     Dates: start: 20101001, end: 20101001

REACTIONS (3)
  - ANXIETY [None]
  - FEAR [None]
  - PANIC REACTION [None]
